FAERS Safety Report 6004790-6 (Version None)
Quarter: 2008Q4

REPORT INFORMATION
  Report Type: 
  Country: None (occurrence: None)
  Receive Date: 20081216
  Receipt Date: 20081209
  Transmission Date: 20090506
  Serious: Yes (Hospitalization)
  Sender: FDA-Public Use
  Company Number: US-ASTRAZENECA-2008UW23467

PATIENT
  Age: 5 Year
  Sex: Male

DRUGS (1)
  1. IRESSA [Suspect]
     Indication: NEUROBLASTOMA
     Route: 048
     Dates: start: 20051201

REACTIONS (1)
  - RHABDOMYOSARCOMA [None]
